FAERS Safety Report 9314081 (Version 1)
Quarter: 2013Q2

REPORT INFORMATION
  Report Type: Spontaneous
  Country: US (occurrence: None)
  Receive Date: 20130524
  Receipt Date: 20130524
  Transmission Date: 20140414
  Serious: Yes (Other)
  Sender: FDA-Public Use
  Company Number: None

PATIENT
  Age: 16 Month
  Sex: Female
  Weight: 10.7 kg

DRUGS (2)
  1. BABY ORAJEL TEETHING MEDICINE [Suspect]
     Indication: TEETHING
     Dosage: PEA SIZE
     Route: 048
     Dates: start: 20100710, end: 20100905
  2. BABY ORAJEL TEETHING MEDICINE [Suspect]
     Indication: TEETHING
     Dosage: PEA SIZE
     Route: 048
     Dates: start: 20100710, end: 20100905

REACTIONS (3)
  - Eye movement disorder [None]
  - Cyanosis [None]
  - Convulsion [None]
